FAERS Safety Report 15145451 (Version 3)
Quarter: 2018Q3

REPORT INFORMATION
  Report Type: Spontaneous
  Country: JP (occurrence: JP)
  Receive Date: 20180713
  Receipt Date: 20180904
  Transmission Date: 20181010
  Serious: Yes (Death, Other)
  Sender: FDA-Public Use
  Company Number: JP-009507513-1807JPN001178J

PATIENT
  Age: 59 Year
  Sex: Male
  Weight: 52 kg

DRUGS (1)
  1. KEYTRUDA [Suspect]
     Active Substance: PEMBROLIZUMAB
     Indication: NON-SMALL CELL LUNG CANCER
     Dosage: 200 MG, Q3W
     Route: 041
     Dates: start: 20180418, end: 20180601

REACTIONS (9)
  - Hyperthyroidism [Unknown]
  - Dehydration [Unknown]
  - Abdominal discomfort [Unknown]
  - Arrhythmia [Fatal]
  - C-reactive protein increased [Unknown]
  - Thyrotoxic crisis [Fatal]
  - Rash [Unknown]
  - Tumour lysis syndrome [Unknown]
  - Pyrexia [Unknown]

NARRATIVE: CASE EVENT DATE: 2018
